FAERS Safety Report 4832780-5 (Version None)
Quarter: 2005Q4

REPORT INFORMATION
  Report Type: 
  Country: None (occurrence: None)
  Receive Date: 20051117
  Receipt Date: 20051102
  Transmission Date: 20060501
  Serious: Yes (Hospitalization, Other)
  Sender: FDA-Public Use
  Company Number: USA-2005-0020841

PATIENT
  Age: 70 Year
  Sex: Female

DRUGS (10)
  1. OXYCONTIN [Suspect]
     Indication: BACK PAIN
     Dates: start: 20020101, end: 20020101
  2. ATIVAN [Concomitant]
  3. LOPRESSOR [Concomitant]
  4. CHLORTALIDONE (CHLORTALIDONE) [Concomitant]
  5. LOTREL [Concomitant]
  6. AMBIEN [Concomitant]
  7. TRAZODONE HCL [Concomitant]
  8. REMERON [Concomitant]
  9. REGLAN [Concomitant]
  10. PEPCID [Concomitant]

REACTIONS (22)
  - ANXIETY [None]
  - BLOOD POTASSIUM DECREASED [None]
  - CONFUSIONAL STATE [None]
  - DELUSIONAL DISORDER, UNSPECIFIED TYPE [None]
  - DEMENTIA [None]
  - DEPRESSION [None]
  - DIARRHOEA [None]
  - DISTURBANCE IN ATTENTION [None]
  - DRUG DEPENDENCE [None]
  - DRUG TOLERANCE [None]
  - DRUG WITHDRAWAL SYNDROME [None]
  - JUDGEMENT IMPAIRED [None]
  - MAJOR DEPRESSION [None]
  - MEMORY IMPAIRMENT [None]
  - NAUSEA [None]
  - OBSESSIVE-COMPULSIVE DISORDER [None]
  - PAIN [None]
  - PARANOIA [None]
  - PSYCHOMOTOR HYPERACTIVITY [None]
  - SUICIDAL IDEATION [None]
  - URINARY TRACT INFECTION [None]
  - VOMITING [None]
